FAERS Safety Report 7771325-7 (Version None)
Quarter: 2011Q3

REPORT INFORMATION
  Report Type: 
  Country: None (occurrence: None)
  Receive Date: 20110922
  Receipt Date: 20110914
  Transmission Date: 20111222
  Serious: Yes (Hospitalization)
  Sender: FDA-Public Use
  Company Number: US-MERCK-1002USA03429

PATIENT
  Age: 56 Year
  Sex: Female
  Weight: 64 kg

DRUGS (2)
  1. FOSAMAX [Suspect]
     Indication: OSTEOPENIA
     Route: 048
     Dates: start: 20010714, end: 20081001
  2. FOSAMAX [Suspect]
     Indication: OSTEOPOROSIS
     Route: 048
     Dates: start: 20010714, end: 20081001

REACTIONS (8)
  - ANAEMIA POSTOPERATIVE [None]
  - INTERSTITIAL LUNG DISEASE [None]
  - BONE LOSS [None]
  - HYPERTENSION [None]
  - POST-TRAUMATIC STRESS DISORDER [None]
  - FEMUR FRACTURE [None]
  - DIABETES MELLITUS [None]
  - CONSTIPATION [None]
